FAERS Safety Report 11226932 (Version 1)
Quarter: 2015Q2

REPORT INFORMATION
  Report Type: Spontaneous
  Country: US (occurrence: US)
  Receive Date: 20150630
  Receipt Date: 20150630
  Transmission Date: 20150821
  Serious: No
  Sender: FDA-Public Use
  Company Number: US-009507513-1506USA014087

PATIENT
  Sex: Male

DRUGS (7)
  1. PIROXICAM. [Concomitant]
     Active Substance: PIROXICAM
  2. NORVASC [Concomitant]
     Active Substance: AMLODIPINE BESYLATE
  3. COZAAR [Suspect]
     Active Substance: LOSARTAN POTASSIUM
     Dosage: STRENGTH REPORTED AS 100MG; 100 MG/ONCE A DAY
     Route: 048
     Dates: start: 201505, end: 2015
  4. LISINOPRIL. [Concomitant]
     Active Substance: LISINOPRIL
  5. ALBUTEROL. [Concomitant]
     Active Substance: ALBUTEROL
  6. IBUPROFEN. [Concomitant]
     Active Substance: IBUPROFEN
  7. COZAAR [Suspect]
     Active Substance: LOSARTAN POTASSIUM
     Indication: HYPERTENSION
     Dosage: STRENGTH REPORTED AS 100MG; 50 MG, UNK
     Route: 048
     Dates: start: 201505, end: 201505

REACTIONS (4)
  - Limb discomfort [Recovering/Resolving]
  - Rheumatoid factor increased [Recovering/Resolving]
  - Peripheral swelling [Recovering/Resolving]
  - Pain in extremity [Recovering/Resolving]

NARRATIVE: CASE EVENT DATE: 2015
